FAERS Safety Report 8232615-7 (Version None)
Quarter: 2012Q1

REPORT INFORMATION
  Report Type: 
  Country: None (occurrence: None)
  Receive Date: 20120323
  Receipt Date: 20120308
  Transmission Date: 20120608
  Serious: Yes (Other)
  Sender: FDA-Public Use
  Company Number: CHPA2012US004399

PATIENT
  Age: 47 Year
  Sex: Female

DRUGS (2)
  1. EXCEDRIN EXTRA STRENGTH TABLETS [Suspect]
     Indication: HEADACHE
     Dosage: 2 DF, PER DAY
     Route: 048
     Dates: end: 20120206
  2. DRUG THERAPY NOS [Concomitant]
     Indication: HYPERTENSION
     Dosage: 1/3 DF, EVERY 3 DAY

REACTIONS (4)
  - INCORRECT DRUG ADMINISTRATION DURATION [None]
  - HYPERSENSITIVITY [None]
  - RASH [None]
  - SKIN DISCOLOURATION [None]
